FAERS Safety Report 7406306-6 (Version None)
Quarter: 2011Q2

REPORT INFORMATION
  Report Type: 
  Country: None (occurrence: None)
  Receive Date: 20110411
  Receipt Date: 20110405
  Transmission Date: 20111010
  Serious: Yes (Hospitalization, Disabling, Other)
  Sender: FDA-Public Use
  Company Number: US-MERCK-1011USA02324

PATIENT
  Age: 66 Year
  Sex: Female
  Weight: 67 kg

DRUGS (5)
  1. INDERAL LA [Concomitant]
     Indication: MIGRAINE
     Route: 065
     Dates: start: 19800101
  2. BONIVA [Suspect]
     Route: 065
     Dates: start: 20080101
  3. FOSAMAX [Suspect]
     Indication: OSTEOPENIA
     Route: 048
     Dates: start: 19970801, end: 20080101
  4. FOSAMAX [Suspect]
     Indication: OSTEOPOROSIS
     Route: 048
     Dates: start: 19970801, end: 20080101
  5. INDERAL LA [Concomitant]
     Indication: EXTRASYSTOLES
     Route: 065
     Dates: start: 19800101

REACTIONS (51)
  - DIARRHOEA [None]
  - DYSPHONIA [None]
  - GENITOURINARY TRACT INFECTION [None]
  - HIATUS HERNIA [None]
  - OESOPHAGEAL DISORDER [None]
  - MUSCULOSKELETAL DISCOMFORT [None]
  - NAUSEA [None]
  - MALAISE [None]
  - CONSTIPATION [None]
  - RECTOCELE [None]
  - HYPERTENSION [None]
  - PARAESTHESIA ORAL [None]
  - THYROID DISORDER [None]
  - NOCTURIA [None]
  - LARGE INTESTINAL HAEMORRHAGE [None]
  - SKIN LESION [None]
  - PELVIC FLOOR MUSCLE WEAKNESS [None]
  - ORAL TORUS [None]
  - VERTIGO [None]
  - MILIA [None]
  - MUSCULOSKELETAL STIFFNESS [None]
  - ATRIAL FIBRILLATION [None]
  - BACK DISORDER [None]
  - BASAL CELL CARCINOMA [None]
  - DIVERTICULUM [None]
  - RHINORRHOEA [None]
  - PARAESTHESIA [None]
  - MUCOSAL ULCERATION [None]
  - BLOOD CHOLESTEROL INCREASED [None]
  - ADVERSE DRUG REACTION [None]
  - CATARACT [None]
  - OSTEONECROSIS OF JAW [None]
  - NEOPLASM SKIN [None]
  - ENTEROCELE [None]
  - BREAST CANCER [None]
  - ACTINIC KERATOSIS [None]
  - LENTIGO [None]
  - LARYNGITIS [None]
  - ORAL INFECTION [None]
  - DENTAL CARIES [None]
  - JAW DISORDER [None]
  - HEADACHE [None]
  - TRIGGER FINGER [None]
  - THROAT IRRITATION [None]
  - BLADDER DISORDER [None]
  - CYSTOCELE [None]
  - INSOMNIA [None]
  - DRY EYE [None]
  - SEBORRHOEIC KERATOSIS [None]
  - RESTLESS LEGS SYNDROME [None]
  - BUNION [None]
